FAERS Safety Report 7060939-8 (Version None)
Quarter: 2010Q4

REPORT INFORMATION
  Report Type: 
  Country: None (occurrence: None)
  Receive Date: 20101026
  Receipt Date: 20101019
  Transmission Date: 20110411
  Serious: Yes (Hospitalization)
  Sender: FDA-Public Use
  Company Number: US-AMGEN-USASP2010000787

PATIENT

DRUGS (1)
  1. ENBREL [Suspect]
     Indication: PSORIATIC ARTHROPATHY
     Dates: start: 20020101

REACTIONS (4)
  - CHEST DISCOMFORT [None]
  - CORONARY ARTERY BYPASS [None]
  - DIABETES MELLITUS [None]
  - DYSPNOEA [None]
